FAERS Safety Report 8229153-4 (Version None)
Quarter: 2012Q1

REPORT INFORMATION
  Report Type: 
  Country: None (occurrence: None)
  Receive Date: 20120322
  Receipt Date: 20120315
  Transmission Date: 20120608
  Serious: Yes (Death, Hospitalization)
  Sender: FDA-Public Use
  Company Number: DE-JNJFOC-20120210593

PATIENT
  Age: 81 Year
  Sex: Male

DRUGS (9)
  1. METOPROLOL SUCCINATE [Concomitant]
     Route: 065
     Dates: start: 20000101, end: 20110912
  2. HALDOL [Suspect]
     Route: 048
     Dates: start: 20110922, end: 20110922
  3. HALDOL [Suspect]
     Route: 048
     Dates: start: 20110920, end: 20110921
  4. HALDOL [Suspect]
     Indication: AGGRESSION
     Route: 048
     Dates: start: 20110924, end: 20110924
  5. DREISAVIT [Concomitant]
     Route: 065
     Dates: start: 20000101, end: 20110919
  6. TORSEMIDE [Concomitant]
     Route: 065
     Dates: start: 20000101, end: 20110919
  7. HALDOL [Suspect]
     Route: 048
     Dates: start: 20110914, end: 20110919
  8. DIPIPERON [Suspect]
     Indication: PRODUCT USED FOR UNKNOWN INDICATION
     Route: 048
     Dates: start: 20110923, end: 20110923
  9. HALDOL [Suspect]
     Route: 048
     Dates: end: 20110913

REACTIONS (6)
  - ADVERSE EVENT [None]
  - AGGRESSION [None]
  - DEATH [None]
  - CEREBROVASCULAR ACCIDENT [None]
  - ELECTROCARDIOGRAM QT PROLONGED [None]
  - DIET REFUSAL [None]
